FAERS Safety Report 15587749 (Version 1)
Quarter: 2018Q4

REPORT INFORMATION
  Report Type: Spontaneous
  Country: CN (occurrence: CN)
  Receive Date: 20181105
  Receipt Date: 20181105
  Transmission Date: 20190205
  Serious: Yes (Hospitalization)
  Sender: FDA-Public Use
  Company Number: CN-JNJFOC-20181040046

PATIENT

DRUGS (2)
  1. IBUPROFEN. [Suspect]
     Active Substance: IBUPROFEN
     Route: 048
  2. IBUPROFEN. [Suspect]
     Active Substance: IBUPROFEN
     Indication: PYREXIA
     Dosage: UNSPECIFIED 5 TO 8 TIMES WITHIN 24 TO 48 HOURS
     Route: 048

REACTIONS (3)
  - Incorrect product administration duration [Unknown]
  - Shock [Recovered/Resolved]
  - Duodenal perforation [Recovered/Resolved]
